FAERS Safety Report 14538588 (Version 2)
Quarter: 2018Q2

REPORT INFORMATION
  Report Type: Spontaneous
  Country: NO (occurrence: NO)
  Receive Date: 20180216
  Receipt Date: 20180503
  Transmission Date: 20180711
  Serious: Yes (Disabling)
  Sender: FDA-Public Use
  Company Number: NO-ROCHE-2074015

PATIENT
  Age: 87 Year
  Sex: Male

DRUGS (4)
  1. ELIQUIS [Concomitant]
     Active Substance: APIXABAN
     Indication: ATRIAL FIBRILLATION
     Dosage: FILM COATED TABLET
     Route: 048
     Dates: start: 201709
  2. METALYSE [Suspect]
     Active Substance: TENECTEPLASE
     Indication: ACUTE MYOCARDIAL INFARCTION
     Dosage: 10 000 E
     Route: 042
     Dates: start: 20180123, end: 20180123
  3. HEPARIN NATRIUM [Interacting]
     Active Substance: HEPARIN SODIUM
     Indication: DEVICE OCCLUSION
     Dosage: 50 E/ML. 5000 E
     Route: 042
     Dates: start: 20180123, end: 20180123
  4. PREDNISOLON [Concomitant]
     Active Substance: PREDNISOLONE
     Indication: VASCULITIS
     Route: 048
     Dates: start: 20180119

REACTIONS (2)
  - Drug interaction [Unknown]
  - Cerebral haemorrhage [Not Recovered/Not Resolved]

NARRATIVE: CASE EVENT DATE: 20180123
